FAERS Safety Report 9847363 (Version 1)
Quarter: 2014Q1

REPORT INFORMATION
  Report Type: Spontaneous
  Country: US (occurrence: US)
  Receive Date: 20140127
  Receipt Date: 20140127
  Transmission Date: 20141002
  Serious: Yes (Other)
  Sender: FDA-Public Use
  Company Number: US-MYLANLABS-2013S1001786

PATIENT
  Age: 77 Year
  Sex: Female
  Weight: 86.18 kg

DRUGS (2)
  1. LETROZOLE TABLETS, USP, 2.5MG; MFR/LABLER: SUN PHARM [Suspect]
     Indication: BREAST CANCER
     Route: 048
     Dates: start: 201111, end: 20130104
  2. BYSTOLIC [Concomitant]
     Indication: BLOOD PRESSURE INCREASED
     Route: 048

REACTIONS (2)
  - Drug ineffective [Not Recovered/Not Resolved]
  - Breast cancer recurrent [Not Recovered/Not Resolved]
